FAERS Safety Report 10014729 (Version 1)
Quarter: 2014Q1

REPORT INFORMATION
  Report Type: Spontaneous
  Country: GB (occurrence: GB)
  Receive Date: 20140317
  Receipt Date: 20140317
  Transmission Date: 20141002
  Serious: Yes (Other)
  Sender: FDA-Public Use
  Company Number: GB-009507513-1403GBR005121

PATIENT
  Age: 51 Year
  Sex: Male
  Weight: 80 kg

DRUGS (1)
  1. CLARITYN ALLERGY [Suspect]
     Indication: HOUSE DUST ALLERGY
     Dosage: 1 DF, QD
     Route: 048
     Dates: start: 20120207, end: 20130508

REACTIONS (1)
  - Fatigue [Recovered/Resolved]
